FAERS Safety Report 8850393 (Version 1)
Quarter: 2012Q4

REPORT INFORMATION
  Report Type: 
  Country: AU (occurrence: AU)
  Receive Date: 20121019
  Receipt Date: 20121019
  Transmission Date: 20130627
  Serious: Yes (Hospitalization, Other)
  Sender: FDA-Public Use
  Company Number: AU-MYLANLABS-2012S1020954

PATIENT
  Age: 53 Year
  Sex: Female

DRUGS (4)
  1. AXITINIB [Suspect]
     Indication: DEPRESSION
     Route: 048
     Dates: start: 201205
  2. DOSULEPIN HYDROCHLORIDE [Suspect]
     Route: 048
     Dates: start: 20121001
  3. TEMAZEPAM [Concomitant]
  4. DIAZEPAM [Concomitant]

REACTIONS (7)
  - Anxiety [Not Recovered/Not Resolved]
  - Paraesthesia [Recovered/Resolved]
  - Burning sensation [Not Recovered/Not Resolved]
  - Tremor [Not Recovered/Not Resolved]
  - Pain [Recovered/Resolved]
  - Abdominal pain upper [Recovered/Resolved]
  - Decreased appetite [Recovered/Resolved]
